FAERS Safety Report 15988563 (Version 1)
Quarter: 2019Q1

REPORT INFORMATION
  Report Type: Spontaneous
  Country: US (occurrence: US)
  Receive Date: 20190221
  Receipt Date: 20190221
  Transmission Date: 20190418
  Serious: Yes (Hospitalization, Other)
  Sender: FDA-Public Use
  Company Number: US-GLAXOSMITHKLINE-US2019GSK029917

PATIENT
  Sex: Male

DRUGS (2)
  1. PREVACID [Suspect]
     Active Substance: LANSOPRAZOLE
     Indication: PRODUCT USED FOR UNKNOWN INDICATION
     Dosage: UNK
     Route: 048
  2. PREVACID [Suspect]
     Active Substance: LANSOPRAZOLE
     Indication: PRODUCT USED FOR UNKNOWN INDICATION
     Dosage: UNK
     Route: 065

REACTIONS (16)
  - Tubulointerstitial nephritis [Unknown]
  - Acquired cystic kidney disease [Unknown]
  - Acute kidney injury [Unknown]
  - Dysuria [Unknown]
  - Chronic kidney disease [Unknown]
  - Haematuria [Unknown]
  - Renal artery stenosis [Unknown]
  - Renal failure [Unknown]
  - Polyuria [Unknown]
  - Obstructive nephropathy [Unknown]
  - Myeloma cast nephropathy [Unknown]
  - Renal injury [Unknown]
  - Renal impairment [Unknown]
  - Proteinuria [Unknown]
  - Nephropathy [Unknown]
  - Blood creatinine increased [Unknown]
